FAERS Safety Report 23731187 (Version 1)
Quarter: 2024Q2

REPORT INFORMATION
  Report Type: Other
  Country: ZA (occurrence: None)
  Receive Date: 20240411
  Receipt Date: 20240411
  Transmission Date: 20240716
  Serious: Yes (Other)
  Sender: FDA-Public Use
  Company Number: ZA-ROCHE-3539101

PATIENT
  Sex: Female

DRUGS (2)
  1. OCREVUS [Suspect]
     Active Substance: OCRELIZUMAB
     Indication: Relapsing multiple sclerosis
     Dosage: THEREAFTER 600MG EVERY 6 MONTHS
     Route: 041
     Dates: start: 20211022
  2. OCREVUS [Suspect]
     Active Substance: OCRELIZUMAB
     Indication: Primary progressive multiple sclerosis

REACTIONS (11)
  - Musculoskeletal stiffness [Unknown]
  - Hypertonia [Unknown]
  - Hyperreflexia [Unknown]
  - Extensor plantar response [Unknown]
  - Hypoaesthesia [Unknown]
  - Magnetic resonance imaging head abnormal [Unknown]
  - Multiple sclerosis [Unknown]
  - Encephalomalacia [Unknown]
  - Spinal osteoarthritis [Unknown]
  - Magnetic resonance imaging spinal abnormal [Unknown]
  - Gait disturbance [Unknown]
